FAERS Safety Report 7494486-6 (Version None)
Quarter: 2011Q2

REPORT INFORMATION
  Report Type: 
  Country: None (occurrence: None)
  Receive Date: 20110520
  Receipt Date: 20110510
  Transmission Date: 20111010
  Serious: Yes (Life-Threatening, Hospitalization)
  Sender: FDA-Public Use
  Company Number: GB-GENENTECH-288820

PATIENT
  Sex: Male
  Weight: 64 kg

DRUGS (30)
  1. DOXORUBICIN HCL [Suspect]
     Indication: DIFFUSE LARGE B-CELL LYMPHOMA
     Dosage: UNK
     Route: 042
     Dates: start: 20090730
  2. BLINDED RITUXIMAB [Suspect]
     Dosage: UNK
     Route: 042
     Dates: start: 20090903, end: 20091026
  3. VINCRISTINE [Suspect]
     Dosage: UNK
     Route: 042
     Dates: start: 20090903, end: 20091026
  4. VINCRISTINE [Suspect]
     Dosage: 2 MG, Q21D
     Route: 042
     Dates: start: 20090903, end: 20091026
  5. BLINDED BEVACIZUMAB [Suspect]
     Dosage: UNK
     Route: 042
     Dates: start: 20090903, end: 20091026
  6. CYCLOPHOSPHAMIDE [Suspect]
     Dosage: UNK
     Route: 042
     Dates: start: 20090903, end: 20091026
  7. LACTULOSE [Concomitant]
     Indication: PRODUCT USED FOR UNKNOWN INDICATION
     Dosage: UNK
     Dates: start: 20090915
  8. NYSTATIN [Concomitant]
     Indication: PRODUCT USED FOR UNKNOWN INDICATION
     Dosage: UNK
     Dates: start: 20090915
  9. NYSTATIN [Concomitant]
     Dosage: UNK
     Dates: end: 20090811
  10. VINCRISTINE [Suspect]
     Indication: DIFFUSE LARGE B-CELL LYMPHOMA
     Dosage: UNK
     Route: 042
     Dates: start: 20090730
  11. RITUXIMAB [Suspect]
     Indication: DIFFUSE LARGE B-CELL LYMPHOMA
     Dosage: 650 MG, Q21D
     Route: 042
     Dates: start: 20090730
  12. OMEPRAZOLE [Concomitant]
     Indication: PRODUCT USED FOR UNKNOWN INDICATION
     Dosage: 20 MG, QD
     Dates: start: 20090730
  13. PLACEBO [Suspect]
     Indication: DIFFUSE LARGE B-CELL LYMPHOMA
     Dosage: UNK
     Route: 042
     Dates: start: 20090730
  14. PREDNISONE TAB [Suspect]
     Dosage: UNK
     Route: 042
     Dates: start: 20090903, end: 20091026
  15. RITUXIMAB [Suspect]
     Dosage: 650 MG, Q21D
     Route: 042
     Dates: start: 20090903
  16. VINCRISTINE [Suspect]
     Indication: DIFFUSE LARGE B-CELL LYMPHOMA
     Dosage: 2 MG, Q21D
     Route: 042
     Dates: start: 20090730
  17. CYCLOPHOSPHAMIDE [Suspect]
     Indication: DIFFUSE LARGE B-CELL LYMPHOMA
     Dosage: 1300 MG, Q21D
     Route: 042
     Dates: start: 20090730, end: 20091026
  18. ALLOPURINOL [Concomitant]
     Indication: PRODUCT USED FOR UNKNOWN INDICATION
     Dosage: 300 MG, QD
     Dates: start: 20090810, end: 20090811
  19. CHLORHEXIDINE [Concomitant]
     Dosage: 10 ML, UNK
     Dates: start: 20090915
  20. GELCLAIR [Concomitant]
     Indication: PRODUCT USED FOR UNKNOWN INDICATION
     Dosage: UNK
     Dates: start: 20090915
  21. CYCLOPHOSPHAMIDE [Suspect]
     Indication: DIFFUSE LARGE B-CELL LYMPHOMA
     Dosage: UNK
     Route: 042
     Dates: start: 20090730
  22. BLINDED RITUXIMAB [Suspect]
     Indication: DIFFUSE LARGE B-CELL LYMPHOMA
     Dosage: UNK
     Route: 042
     Dates: start: 20090730
  23. PREDNISOLONE [Suspect]
     Indication: DIFFUSE LARGE B-CELL LYMPHOMA
     Dosage: 100 MG, Q5D
     Route: 048
     Dates: start: 20090730, end: 20091026
  24. OMEPRAZOLE [Concomitant]
     Dosage: 20 MG, QD
     Dates: start: 20090810
  25. DOXORUBICIN HCL [Suspect]
     Dosage: UNK
     Route: 042
     Dates: start: 20090903, end: 20091026
  26. PLACEBO [Suspect]
     Dosage: UNK
     Route: 042
     Dates: start: 20090903, end: 20091026
  27. DOXORUBICIN HCL [Suspect]
     Indication: DIFFUSE LARGE B-CELL LYMPHOMA
     Dosage: 88 MG/M2, Q21D
     Route: 042
     Dates: start: 20090730, end: 20091026
  28. CHLORHEXIDINE [Concomitant]
     Indication: PRODUCT USED FOR UNKNOWN INDICATION
     Dosage: UNK
  29. BLINDED BEVACIZUMAB [Suspect]
     Indication: DIFFUSE LARGE B-CELL LYMPHOMA
     Dosage: UNK
     Route: 042
     Dates: start: 20090730
  30. PREDNISONE TAB [Suspect]
     Indication: DIFFUSE LARGE B-CELL LYMPHOMA
     Dosage: UNK
     Route: 042
     Dates: start: 20090730

REACTIONS (2)
  - PYREXIA [None]
  - NEUTROPENIC SEPSIS [None]
